FAERS Safety Report 5014931-5 (Version None)
Quarter: 2006Q2

REPORT INFORMATION
  Report Type: 
  Country: None (occurrence: None)
  Receive Date: 20060531
  Receipt Date: 20060519
  Transmission Date: 20061013
  Serious: Yes (Other)
  Sender: FDA-Public Use
  Company Number: US-ROCHE-448936

PATIENT
  Sex: Female
  Weight: 3.8 kg

DRUGS (1)
  1. ACCUTANE [Suspect]
     Dates: start: 19960218, end: 19960716

REACTIONS (5)
  - DRUG EXPOSURE DURING PREGNANCY [None]
  - LIVE BIRTH [None]
  - NEURAL TUBE DEFECT [None]
  - PHARYNGOLARYNGEAL PAIN [None]
  - PREGNANCY [None]
